FAERS Safety Report 11081779 (Version 1)
Quarter: 2015Q2

REPORT INFORMATION
  Report Type: Spontaneous
  Country: BR (occurrence: BR)
  Receive Date: 20150501
  Receipt Date: 20150501
  Transmission Date: 20150821
  Serious: Yes (Hospitalization, Other)
  Sender: FDA-Public Use
  Company Number: PHHY2015BR050784

PATIENT
  Age: 40 Year
  Sex: Female

DRUGS (9)
  1. GANCICLOVIR. [Concomitant]
     Active Substance: GANCICLOVIR
     Indication: CYTOMEGALOVIRUS INFECTION
     Dosage: FOR 24 DAYS
     Route: 042
     Dates: start: 20140805
  2. MYFORTIC [Suspect]
     Active Substance: MYCOPHENOLATE SODIUM
     Dosage: 360 MG, BID
     Route: 065
     Dates: start: 201407, end: 20140723
  3. TACROLIMUS. [Suspect]
     Active Substance: TACROLIMUS
     Indication: RENAL TRANSPLANT
     Dosage: 6 MG, BID
     Route: 065
     Dates: start: 201405
  4. VALCYTE [Concomitant]
     Active Substance: VALGANCICLOVIR HYDROCHLORIDE
     Indication: INFECTION PROPHYLAXIS
     Dosage: UNK
     Route: 065
  5. VALCYTE [Concomitant]
     Active Substance: VALGANCICLOVIR HYDROCHLORIDE
     Indication: CYTOMEGALOVIRUS INFECTION
     Dosage: FOR 25 DAYS
     Route: 065
     Dates: end: 20140923
  6. THYMOGLOBULIN [Concomitant]
     Active Substance: LAPINE T-LYMPHOCYTE IMMUNE GLOBULIN
     Indication: RENAL TRANSPLANT
     Dosage: 225 MG, UNK
     Route: 065
     Dates: start: 201405
  7. GANCICLOVIR. [Concomitant]
     Active Substance: GANCICLOVIR
     Indication: INFECTION PROPHYLAXIS
     Route: 065
  8. MYFORTIC [Suspect]
     Active Substance: MYCOPHENOLATE SODIUM
     Indication: RENAL TRANSPLANT
     Dosage: 720 MG, BID
     Route: 065
     Dates: start: 201405
  9. EVEROLIMUS [Suspect]
     Active Substance: EVEROLIMUS
     Indication: RENAL TRANSPLANT
     Dosage: UNK
     Route: 065
     Dates: start: 20140723

REACTIONS (21)
  - Perinephric collection [Unknown]
  - Petechiae [Unknown]
  - Anaemia [Unknown]
  - Urinary tract infection [Unknown]
  - Cytomegalovirus infection [Unknown]
  - Leukopenia [Not Recovered/Not Resolved]
  - Haemolytic uraemic syndrome [Unknown]
  - Renal pain [Unknown]
  - Hyperaesthesia [Unknown]
  - Vaginal haemorrhage [Unknown]
  - Kidney fibrosis [Unknown]
  - Complications of transplanted kidney [Not Recovered/Not Resolved]
  - Procedural hypertension [Unknown]
  - Pyelonephritis [Unknown]
  - Decreased appetite [Unknown]
  - Tremor [Unknown]
  - Procedural hypotension [Unknown]
  - Thrombocytopenia [Unknown]
  - Urinary fistula [Unknown]
  - Mouth haemorrhage [Unknown]
  - Epistaxis [Unknown]

NARRATIVE: CASE EVENT DATE: 201405
